FAERS Safety Report 4587332-1 (Version None)
Quarter: 2005Q1

REPORT INFORMATION
  Report Type: 
  Country: None (occurrence: None)
  Receive Date: 20050215
  Receipt Date: 20050202
  Transmission Date: 20050727
  Serious: Yes (Hospitalization)
  Sender: FDA-Public Use
  Company Number: 2005023889

PATIENT
  Age: 54 Year
  Sex: Female

DRUGS (3)
  1. ATARAX [Suspect]
     Indication: ANXIETY
     Dosage: ORAL
     Route: 048
     Dates: start: 20050106, end: 20050109
  2. FLUINDIONE (FLUINDIONE) [Concomitant]
  3. AMIODARONE HYDROCHLROIDE (AMIODARONE HYDROCHLORIDE) [Concomitant]

REACTIONS (4)
  - ACCIDENTAL OVERDOSE [None]
  - CONFUSIONAL STATE [None]
  - ILL-DEFINED DISORDER [None]
  - SOMNOLENCE [None]
